FAERS Safety Report 6746840-5 (Version None)
Quarter: 2010Q2

REPORT INFORMATION
  Report Type: 
  Country: None (occurrence: None)
  Receive Date: 20100528
  Receipt Date: 20100305
  Transmission Date: 20101027
  Serious: No
  Sender: FDA-Public Use
  Company Number: A0848689A

PATIENT
  Age: 46 Year
  Sex: Male

DRUGS (8)
  1. VENTOLIN [Suspect]
     Indication: CHRONIC OBSTRUCTIVE PULMONARY DISEASE
     Dosage: 1PUFF FOUR TIMES PER DAY
     Route: 055
     Dates: start: 20090601
  2. ADVAIR DISKUS 100/50 [Concomitant]
  3. ASPIRIN [Concomitant]
  4. OMEPRAZOLE [Concomitant]
  5. ARTHRITIS MEDICATION [Concomitant]
  6. SIMVASTATIN [Concomitant]
  7. FAMOTIDINE [Concomitant]
  8. SEROQUEL [Concomitant]

REACTIONS (2)
  - DRUG INEFFECTIVE [None]
  - FEELING COLD [None]
